FAERS Safety Report 8722720 (Version 2)
Quarter: 2015Q3

REPORT INFORMATION
  Report Type: Report from Study
  Country: US (occurrence: US)
  Receive Date: 20120814
  Receipt Date: 20150811
  Transmission Date: 20151125
  Serious: Yes (Hospitalization)
  Sender: FDA-Public Use
  Company Number: US-ROCHE-1097921

PATIENT
  Sex: Female
  Weight: 130 kg

DRUGS (11)
  1. ACTIVASE [Suspect]
     Active Substance: ALTEPLASE
     Indication: ARTERIOSCLEROSIS CORONARY ARTERY
     Dosage: OVER 2 HOURS AT 4.10
     Route: 065
     Dates: start: 19881102
  2. ECOTRIN [Concomitant]
     Active Substance: ASPIRIN
     Route: 048
  3. CHLORAL HYDRATE [Concomitant]
     Active Substance: CHLORAL HYDRATE
     Route: 048
  4. MAALOX TC [Concomitant]
     Dosage: 15 CC FOR INDIGESTION
     Route: 048
  5. PERSANTINE [Concomitant]
     Active Substance: DIPYRIDAMOLE
     Route: 048
  6. POTASSIUM CHLORIDE. [Concomitant]
     Active Substance: POTASSIUM CHLORIDE
     Dosage: IN 1000 CC
     Route: 065
  7. ATROPINE. [Concomitant]
     Active Substance: ATROPINE
     Indication: CONSTIPATION
     Route: 042
  8. ACTIVASE [Suspect]
     Active Substance: ALTEPLASE
     Indication: MYOCARDIAL INFARCTION
     Dosage: BOLUS AT 40 MG/HR AT 3.10
     Route: 065
     Dates: start: 19881102
  9. CARDIZEM [Concomitant]
     Active Substance: DILTIAZEM HYDROCHLORIDE
     Route: 048
  10. NTG [Concomitant]
     Active Substance: NITROGLYCERIN
     Route: 058
  11. DEXTROSE. [Concomitant]
     Active Substance: DEXTROSE
     Route: 065

REACTIONS (10)
  - Ventricular extrasystoles [Unknown]
  - Vomiting [Unknown]
  - Cardiac murmur [Unknown]
  - Pyrexia [Unknown]
  - Hypotension [Unknown]
  - Dyspnoea [Unknown]
  - Sinus bradycardia [Unknown]
  - Oedema peripheral [Unknown]
  - Nausea [Unknown]
  - Skin haemorrhage [Unknown]
